FAERS Safety Report 10047160 (Version 1)
Quarter: 2014Q1

REPORT INFORMATION
  Report Type: Spontaneous
  Country: US (occurrence: US)
  Receive Date: 20140331
  Receipt Date: 20140331
  Transmission Date: 20141002
  Serious: No
  Sender: FDA-Public Use
  Company Number: US-MYLANLABS-2013S1013976

PATIENT
  Age: 54 Year
  Sex: Female
  Weight: 69.85 kg

DRUGS (11)
  1. FENTANYL TRANSDERMAL SYSTEM [Suspect]
     Indication: PAIN
     Dosage: CHANGED Q72H
     Route: 062
     Dates: start: 2013
  2. FENTANYL TRANSDERMAL SYSTEM [Suspect]
     Indication: PAIN
     Dosage: CHANGED Q72H
     Route: 062
     Dates: start: 2013
  3. FENTANYL TRANSDERMAL SYSTEM [Suspect]
     Indication: PAIN
     Dosage: CHANGED Q72H
     Route: 062
     Dates: start: 2013
  4. PROZAC [Concomitant]
     Indication: DEPRESSION
     Route: 048
  5. NORVASC [Concomitant]
     Indication: HYPERTENSION
     Route: 048
  6. PREVACID [Concomitant]
     Indication: GASTROOESOPHAGEAL REFLUX DISEASE
     Route: 048
  7. VITAMIN [Concomitant]
     Dosage: MULTI-VITAMIN, 1 TABLET, TAKEN DAILY
     Route: 048
  8. KLONOPIN [Concomitant]
     Indication: ANXIETY
     Route: 048
     Dates: start: 201306
  9. ATIVAN [Concomitant]
     Indication: ANXIETY
     Route: 048
  10. OXYCODONE [Concomitant]
     Indication: BREAKTHROUGH PAIN
     Dosage: EVERY 4 - 6 HOURS, AS NEEDED.
     Route: 048
  11. TYLENOL [Concomitant]
     Indication: PAIN
     Dosage: EVERY 4 - 6 HOURS, AS NEEDED
     Route: 048

REACTIONS (1)
  - Drug screen negative [Not Recovered/Not Resolved]
